FAERS Safety Report 5890879-9 (Version None)
Quarter: 2008Q3

REPORT INFORMATION
  Report Type: 
  Country: None (occurrence: None)
  Receive Date: 20080918
  Receipt Date: 20080918
  Transmission Date: 20090109
  Serious: No
  Sender: FDA-Public Use
  Company Number: None

PATIENT
  Age: 88 Year
  Sex: Female
  Weight: 42.2752 kg

DRUGS (1)
  1. CEFEPIME [Suspect]
     Indication: LUNG INFECTION PSEUDOMONAL
     Dosage: 1 GM Q12H IV
     Route: 042
     Dates: start: 20080815, end: 20080818

REACTIONS (1)
  - RASH GENERALISED [None]
